FAERS Safety Report 4641704-5 (Version None)
Quarter: 2005Q2

REPORT INFORMATION
  Report Type: 
  Country: None (occurrence: None)
  Receive Date: 20050421
  Receipt Date: 20050411
  Transmission Date: 20051028
  Serious: Yes (Hospitalization)
  Sender: FDA-Public Use
  Company Number: ES-AMGEN-UK126546

PATIENT
  Sex: Female
  Weight: 109 kg

DRUGS (12)
  1. NEULASTA [Suspect]
     Indication: CHEMOTHERAPY
     Route: 058
     Dates: start: 20041218, end: 20050312
  2. CYCLOPHOSPHAMIDE [Suspect]
     Route: 065
  3. VINCRISTINE [Suspect]
     Route: 065
  4. RITUXIMAB [Suspect]
     Route: 065
  5. PREDNISONE TAB [Suspect]
     Route: 065
  6. DOXORUBICIN HYDROCHLORIDE [Suspect]
     Route: 042
     Dates: start: 20041217, end: 20050311
  7. RANITIDINE [Concomitant]
     Route: 048
     Dates: start: 20040909
  8. ALLOPURINOL [Concomitant]
     Route: 048
     Dates: start: 20041209
  9. VITAMIN C [Concomitant]
     Route: 048
     Dates: start: 20040311
  10. ACETYLCYSTEINE [Concomitant]
     Route: 048
     Dates: start: 20050311
  11. DEXTROMETHORPHAN HYDROBROMIDE [Concomitant]
     Route: 048
     Dates: start: 20040311
  12. ANALGESICS [Concomitant]
     Route: 048
     Dates: start: 20041209

REACTIONS (1)
  - AGRANULOCYTOSIS [None]
